FAERS Safety Report 9977326 (Version 1)
Quarter: 2014Q1

REPORT INFORMATION
  Report Type: Report from Study
  Country: US (occurrence: US)
  Receive Date: 20140306
  Receipt Date: 20140306
  Transmission Date: 20141002
  Serious: No
  Sender: FDA-Public Use
  Company Number: US-ABBVIE-13P-163-1168880-00

PATIENT
  Age: 58 Year
  Sex: Male

DRUGS (8)
  1. HUMIRA [Suspect]
     Indication: CROHN^S DISEASE
     Dates: start: 20131018, end: 20131018
  2. HUMIRA [Suspect]
     Dates: start: 20131101, end: 20131101
  3. HUMIRA [Suspect]
  4. FERROUS GLUC [Concomitant]
     Indication: MINERAL SUPPLEMENTATION
  5. AMLODIPINE [Concomitant]
     Indication: HYPERTENSION
  6. COMPLETE MULTIVITAMIN [Concomitant]
     Indication: SUPPLEMENTATION THERAPY
  7. TYLENOL [Concomitant]
     Indication: ARTHRALGIA
  8. ASA [Concomitant]
     Indication: ANTICOAGULANT THERAPY

REACTIONS (2)
  - Pruritus [Not Recovered/Not Resolved]
  - Rash erythematous [Unknown]
